FAERS Safety Report 9716966 (Version 1)
Quarter: 2013Q4

REPORT INFORMATION
  Report Type: Spontaneous
  Country: JP (occurrence: None)
  Receive Date: 20131125
  Receipt Date: 20131125
  Transmission Date: 20140711
  Serious: Yes (Other)
  Sender: FDA-Public Use
  Company Number: SYM-2013-13083

PATIENT
  Age: 50 Year
  Sex: Female

DRUGS (5)
  1. 5 FU [Suspect]
     Indication: COLORECTAL CANCER STAGE IV
  2. IRINOTECAN (IRINOTECAN) (IRINOTECAN) [Suspect]
     Indication: COLORECTAL CANCER STAGE IV
  3. LEUCOVORIN [Suspect]
     Indication: COLORECTAL CANCER STAGE IV
  4. OXALIPLATIN (OXALIPLATIN) (SOLUTION FOR INFUSION) (OXALIPLATIN) [Suspect]
     Indication: COLORECTAL CANCER STAGE IV
  5. 5HT3-RECEPTOR ANTAGONIST (SEROTONIN) (5HT3) ANTAGONISTS) (NULL) [Suspect]
     Indication: PROPHYLAXIS OF NAUSEA AND VOMITING

REACTIONS (3)
  - Loss of consciousness [None]
  - Dizziness [None]
  - Shock [None]
